FAERS Safety Report 7288032-X (Version None)
Quarter: 2011Q1

REPORT INFORMATION
  Report Type: 
  Country: None (occurrence: None)
  Receive Date: 20110211
  Receipt Date: 20110202
  Transmission Date: 20110831
  Serious: Yes (Other)
  Sender: FDA-Public Use
  Company Number: PHHY2011MX08468

PATIENT
  Sex: Female

DRUGS (5)
  1. VENALOT DEPOT [Concomitant]
     Dosage: 180 MG EVERY 12 HOURS FOR 3 WEEKS
  2. CALCIUM [Concomitant]
  3. ACLASTA [Suspect]
     Indication: OSTEOPENIA
     Dosage: 5MG/100ML
     Dates: start: 20110111
  4. DANZEN [Concomitant]
     Dosage: EVERY 8 HOURS FOR 10 DAYS
  5. CRONOLEVEL [Concomitant]

REACTIONS (8)
  - VEIN DISORDER [None]
  - INFUSION SITE SWELLING [None]
  - INFUSION SITE PAIN [None]
  - INFUSION SITE HAEMATOMA [None]
  - HYPOAESTHESIA [None]
  - IMPAIRED DRIVING ABILITY [None]
  - PAIN IN EXTREMITY [None]
  - ACTIVITIES OF DAILY LIVING IMPAIRED [None]
